FAERS Safety Report 10374945 (Version 1)
Quarter: 2014Q3

REPORT INFORMATION
  Report Type: Spontaneous
  Country: FR (occurrence: FR)
  Receive Date: 20140811
  Receipt Date: 20140811
  Transmission Date: 20150326
  Serious: Yes (Hospitalization, Other)
  Sender: FDA-Public Use
  Company Number: FR-PAR PHARMACEUTICAL, INC-2014SCPR009319

PATIENT

DRUGS (5)
  1. KETALAR [Suspect]
     Active Substance: KETAMINE HYDROCHLORIDE
     Indication: SUBSTANCE USE
     Dosage: UNK UNK, UNKNOWN
  2. CODEINE [Concomitant]
     Active Substance: CODEINE
     Indication: SUBSTANCE USE
     Dosage: UNK, UNKNOWN
     Route: 065
  3. BENZODIAZEPINE [Concomitant]
     Active Substance: BENZODIAZEPINE
     Indication: SUBSTANCE USE
     Dosage: UNK, UNKNOWN
     Route: 065
  4. METHADONE [Concomitant]
     Active Substance: METHADONE HYDROCHLORIDE
     Indication: SUBSTANCE USE
     Dosage: UNK, UNKNOWN
     Route: 065
  5. CANNABIS [Concomitant]
     Active Substance: CANNABIS SATIVA SUBSP. INDICA TOP
     Indication: SUBSTANCE USE
     Dosage: UNK, UNKNOWN
     Route: 065

REACTIONS (15)
  - Brugada syndrome [Recovered/Resolved]
  - Drug abuse [Unknown]
  - Renal impairment [Recovered/Resolved]
  - Dyspnoea [None]
  - Metabolic acidosis [None]
  - Toxicity to various agents [Recovered/Resolved]
  - Overdose [Recovered/Resolved]
  - Confusional state [None]
  - Hepatocellular injury [None]
  - Respiratory distress [None]
  - Myocarditis [Recovered/Resolved]
  - Cholestasis [Recovered/Resolved]
  - Respiratory acidosis [None]
  - Hepatic function abnormal [Recovered/Resolved]
  - Cardiac failure congestive [Recovered/Resolved]
